FAERS Safety Report 10645542 (Version 1)
Quarter: 2014Q4

REPORT INFORMATION
  Report Type: Spontaneous
  Country: US (occurrence: None)
  Receive Date: 20141210
  Receipt Date: 20141210
  Transmission Date: 20150529
  Serious: Yes (Hospitalization)
  Sender: FDA-Public Use
  Company Number: None

PATIENT
  Age: 81 Year
  Sex: Male
  Weight: 104 kg

DRUGS (11)
  1. ATORVASTATIN [Concomitant]
     Active Substance: ATORVASTATIN
  2. AMIODARONE [Concomitant]
     Active Substance: AMIODARONE
  3. METOPROLOL [Concomitant]
     Active Substance: METOPROLOL
  4. ASPIRIN. [Concomitant]
     Active Substance: ASPIRIN
  5. HYDROCORTISONE. [Concomitant]
     Active Substance: HYDROCORTISONE
  6. LINEZOLID. [Concomitant]
     Active Substance: LINEZOLID
  7. POTASSIUM [Concomitant]
     Active Substance: POTASSIUM
  8. APIXABAN [Suspect]
     Active Substance: APIXABAN
     Indication: ATRIAL FIBRILLATION
     Dosage: 1 TAB BID  ORAL
     Route: 048
     Dates: start: 20141119, end: 20141124
  9. FLUCONAZOLE. [Concomitant]
     Active Substance: FLUCONAZOLE
  10. LACTOBACILLUS [Concomitant]
     Active Substance: LACTOBACILLUS ACIDOPHILUS
  11. PROTONIX [Concomitant]
     Active Substance: PANTOPRAZOLE SODIUM

REACTIONS (1)
  - Haematuria [None]

NARRATIVE: CASE EVENT DATE: 20141124
